FAERS Safety Report 21318186 (Version 6)
Quarter: 2024Q3

REPORT INFORMATION
  Report Type: Spontaneous
  Country: US (occurrence: US)
  Receive Date: 20220911
  Receipt Date: 20240828
  Transmission Date: 20241017
  Serious: Yes (Hospitalization, Other)
  Sender: SANOFI AVENTIS
  Company Number: US-SA-SAC20220826000606

PATIENT
  Age: 79 Year
  Sex: Female

DRUGS (1)
  1. DUPIXENT [Suspect]
     Active Substance: DUPILUMAB
     Indication: Cough variant asthma
     Dosage: 200 MG, QOW
     Route: 058
     Dates: start: 20220209

REACTIONS (9)
  - Transient ischaemic attack [Unknown]
  - Rash pustular [Unknown]
  - Inflammation [Unknown]
  - Sensitive skin [Unknown]
  - Cough [Unknown]
  - Osteoporosis [Unknown]
  - Pustule [Recovered/Resolved]
  - Rash [Recovering/Resolving]
  - Drug ineffective for unapproved indication [Unknown]

NARRATIVE: CASE EVENT DATE: 20240101
